FAERS Safety Report 22187517 (Version 7)
Quarter: 2024Q1

REPORT INFORMATION
  Report Type: Spontaneous
  Country: US (occurrence: US)
  Receive Date: 20230407
  Receipt Date: 20240102
  Transmission Date: 20240410
  Serious: No
  Sender: FDA-Public Use
  Company Number: US-ALXN-A202304379

PATIENT
  Age: 1 Year
  Sex: Male

DRUGS (1)
  1. STRENSIQ [Suspect]
     Active Substance: ASFOTASE ALFA
     Indication: Hypophosphatasia
     Dosage: UNK UNK, TIW
     Route: 058
     Dates: start: 202205

REACTIONS (12)
  - Hypotonia [Not Recovered/Not Resolved]
  - Tooth loss [Unknown]
  - Impaired healing [Unknown]
  - Mouth injury [Unknown]
  - Fall [Unknown]
  - Feeling abnormal [Recovered/Resolved]
  - Sensitive skin [Unknown]
  - Depressed mood [Recovered/Resolved]
  - Asthenia [Recovered/Resolved]
  - Injection site discomfort [Unknown]
  - Injection site bruising [Unknown]
  - Injection site reaction [Unknown]

NARRATIVE: CASE EVENT DATE: 20230401
